FAERS Safety Report 25671396 (Version 1)
Quarter: 2025Q3

REPORT INFORMATION
  Report Type: Spontaneous
  Country: US (occurrence: US)
  Receive Date: 20250812
  Receipt Date: 20250812
  Transmission Date: 20251021
  Serious: No
  Sender: SCIEGEN PHARMACEUTICALS INC
  Company Number: US-SCIEGENP-2025SCSPO00178

PATIENT
  Age: 83 Year
  Sex: Female
  Weight: 68 kg

DRUGS (3)
  1. GABAPENTIN [Suspect]
     Active Substance: GABAPENTIN
     Indication: Peripheral swelling
     Route: 048
  2. GABAPENTIN [Suspect]
     Active Substance: GABAPENTIN
     Indication: Peripheral swelling
  3. TYLENOL [Concomitant]
     Active Substance: ACETAMINOPHEN
     Indication: Product used for unknown indication
     Route: 065

REACTIONS (11)
  - Dyskinesia [Unknown]
  - Eye movement disorder [Unknown]
  - Asthenopia [Unknown]
  - Condition aggravated [Unknown]
  - Somnolence [Unknown]
  - Coordination abnormal [Unknown]
  - Dysarthria [Unknown]
  - Nausea [Unknown]
  - Pyrexia [Unknown]
  - Peripheral swelling [Unknown]
  - Product prescribing issue [Unknown]
